FAERS Safety Report 12720230 (Version 2)
Quarter: 2016Q4

REPORT INFORMATION
  Report Type: Report from Study
  Country: KR (occurrence: KR)
  Receive Date: 20160907
  Receipt Date: 20161004
  Transmission Date: 20170207
  Serious: Yes (Other)
  Sender: FDA-Public Use
  Company Number: KR-TEVA-690612ISR

PATIENT
  Age: 74 Year
  Sex: Male
  Weight: 60 kg

DRUGS (10)
  1. MIRAPEX TAB [Concomitant]
     Dosage: 1.5 MILLIGRAM DAILY;
     Route: 048
     Dates: start: 20100805
  2. PK-MERZ TAB [Concomitant]
     Indication: PARKINSON^S DISEASE
     Dosage: 200 MILLIGRAM DAILY;
     Route: 048
     Dates: start: 20101021
  3. PERKIN TAB 250/25MG [Concomitant]
     Indication: PARKINSON^S DISEASE
     Route: 048
     Dates: start: 20100729
  4. EXELON CAP 4.5MG [Concomitant]
     Indication: DEMENTIA
     Dosage: 4.5 MILLIGRAM DAILY;
     Route: 048
     Dates: start: 20150507
  5. AZILECT [Suspect]
     Active Substance: RASAGILINE MESYLATE
     Indication: PARKINSON^S DISEASE
     Dosage: 1 MILLIGRAM DAILY;
     Route: 048
     Dates: start: 20150409
  6. HARNAL-D TAB [Concomitant]
     Indication: BENIGN PROSTATIC HYPERPLASIA
     Dosage: .2 MILLIGRAM DAILY;
     Route: 048
     Dates: start: 20150409
  7. MOTILIUM M TAB [Concomitant]
     Dosage: 10 MILLIGRAM DAILY;
     Route: 048
     Dates: start: 20150409
  8. EXELON CAP 6MG [Concomitant]
     Indication: DEMENTIA
     Dosage: 12 MILLIGRAM DAILY;
     Route: 048
     Dates: start: 20150507
  9. RIVOTRIL TAB [Concomitant]
     Indication: PROPHYLAXIS
     Dosage: .5 MILLIGRAM DAILY;
     Route: 048
     Dates: start: 20130228
  10. SEROQUEL [Concomitant]
     Active Substance: QUETIAPINE FUMARATE
     Indication: PROPHYLAXIS
     Dosage: 25 MILLIGRAM DAILY;
     Route: 048
     Dates: start: 20130228

REACTIONS (1)
  - Oculogyric crisis [Recovered/Resolved]

NARRATIVE: CASE EVENT DATE: 20150507
